FAERS Safety Report 22101393 (Version 3)
Quarter: 2024Q1

REPORT INFORMATION
  Report Type: Report from Study
  Country: CA (occurrence: CA)
  Receive Date: 20230316
  Receipt Date: 20240112
  Transmission Date: 20240409
  Serious: Yes (Other)
  Sender: FDA-Public Use
  Company Number: CA-KOREA IPSEN Pharma-2023-01414

PATIENT
  Age: 85 Year
  Sex: Male

DRUGS (5)
  1. LANREOTIDE ACETATE [Suspect]
     Active Substance: LANREOTIDE ACETATE
     Indication: Gastroenteropancreatic neuroendocrine tumour disease
     Route: 058
     Dates: start: 20230111
  2. THYROXINE [Concomitant]
     Active Substance: LEVOTHYROXINE
     Dosage: 0.1MG OD
  3. PERINDOPRIL [Concomitant]
     Active Substance: PERINDOPRIL
     Dosage: 8 MG OD
  4. XARELTO [Concomitant]
     Active Substance: RIVAROXABAN
     Dosage: 20 MG OD
  5. PREDNISONE [Concomitant]
     Active Substance: PREDNISONE
     Dosage: 5-10 MG OD

REACTIONS (5)
  - Aortic valve replacement [Unknown]
  - Thrombolysis [Unknown]
  - Faeces discoloured [Recovered/Resolved]
  - Muscle spasms [Unknown]
  - Hypertension [Not Recovered/Not Resolved]

NARRATIVE: CASE EVENT DATE: 20230101
